FAERS Safety Report 4917766-4 (Version None)
Quarter: 2006Q1

REPORT INFORMATION
  Report Type: 
  Country: None (occurrence: None)
  Receive Date: 20060221
  Receipt Date: 20060202
  Transmission Date: 20060701
  Serious: Yes (Other)
  Sender: FDA-Public Use
  Company Number: US-SANOFI-SYNTHELABO-A03200600655

PATIENT
  Sex: Male
  Weight: 59.41 kg

DRUGS (7)
  1. PLAVIX [Suspect]
     Indication: ANGIOPLASTY
     Route: 048
     Dates: start: 20060101
  2. ATACAND [Concomitant]
     Dosage: UNK
     Route: 048
  3. ALTACE [Concomitant]
     Dosage: UNK
     Route: 048
  4. COREG [Concomitant]
     Dosage: UNK
     Route: 048
  5. PRAVACHOL [Concomitant]
     Dosage: UNK
     Route: 048
  6. NORVASC [Concomitant]
     Dosage: UNK
     Route: 048
  7. ASPIRIN [Concomitant]
     Dosage: UNK
     Route: 048

REACTIONS (6)
  - DIZZINESS [None]
  - FALL [None]
  - FOOT FRACTURE [None]
  - LOSS OF CONSCIOUSNESS [None]
  - SYNCOPE [None]
  - TIBIA FRACTURE [None]
